FAERS Safety Report 7488817-0 (Version None)
Quarter: 2011Q2

REPORT INFORMATION
  Report Type: 
  Country: None (occurrence: None)
  Receive Date: 20110518
  Receipt Date: 20110511
  Transmission Date: 20111010
  Serious: Yes (Death)
  Sender: FDA-Public Use
  Company Number: DE-GENZYME-FLUD-1000874

PATIENT
  Sex: Male

DRUGS (8)
  1. CIPROFLOXACIN HCL [Concomitant]
     Indication: PROPHYLAXIS
     Dosage: 500 MG, QD
     Route: 065
  2. BUSULFAN [Suspect]
     Indication: STEM CELL TRANSPLANT
     Dosage: 1 MG/KG, QID ON DAYS -3 AND -2
     Route: 048
  3. CAMPATH [Suspect]
     Dosage: 20 MG FROM DAY -6 TO -4
     Route: 065
  4. FLUDARA [Suspect]
     Indication: STEM CELL TRANSPLANT
     Dosage: 30 MG/M2, QD DAYS -8 TO -4
     Route: 042
     Dates: start: 20051015, end: 20051019
  5. CAMPATH [Suspect]
     Dosage: 10 MG ON DAY -7
     Route: 065
  6. CYCLOSPORINE [Concomitant]
     Indication: PRODUCT USED FOR UNKNOWN INDICATION
     Dosage: STARTED ON DAY -1
     Route: 048
  7. COTRIM [Concomitant]
     Indication: ANTIFUNGAL PROPHYLAXIS
     Dosage: 960 MG, 2X/W
     Route: 065
  8. CAMPATH [Suspect]
     Indication: PROPHYLAXIS AGAINST GRAFT VERSUS HOST DISEASE
     Dosage: 5 MG ON DAY -8
     Route: 065
     Dates: start: 20051015, end: 20051019

REACTIONS (1)
  - COMPLETED SUICIDE [None]
